FAERS Safety Report 8601633 (Version 3)
Quarter: 2016Q1

REPORT INFORMATION
  Report Type: Spontaneous
  Country: NL (occurrence: NL)
  Receive Date: 20120606
  Receipt Date: 20160104
  Transmission Date: 20160526
  Serious: Yes (Other)
  Sender: FDA-Public Use
  Company Number: NL-PFIZER INC-2012129650

PATIENT
  Age: 71 Year
  Sex: Male
  Weight: 75 kg

DRUGS (12)
  1. SOMAVERT [Suspect]
     Active Substance: PEGVISOMANT
     Dosage: 10 MG, 1X/DAY
     Route: 058
     Dates: start: 20120815
  2. RISEDRONIC ACID [Concomitant]
     Active Substance: RISEDRONIC ACID
     Indication: OSTEOPOROSIS PROPHYLAXIS
     Dosage: 35 MG, WEEKLY
     Route: 048
  3. PARACETAMOL [Concomitant]
     Active Substance: ACETAMINOPHEN
     Dosage: 500 MG, UNK
     Route: 048
  4. TESTOSTERONE. [Concomitant]
     Active Substance: TESTOSTERONE
     Dosage: 50 MG, 1X/DAY
     Route: 003
  5. SOMAVERT [Suspect]
     Active Substance: PEGVISOMANT
     Indication: ACROMEGALY
     Dosage: 10 MG, 1X/DAY
     Route: 058
     Dates: start: 20101104, end: 20110630
  6. TOLTERODINE [Concomitant]
     Active Substance: TOLTERODINE
     Dosage: 2 MG, 2X/DAY
     Route: 048
  7. SOMAVERT [Suspect]
     Active Substance: PEGVISOMANT
     Dosage: 20 MG, 1X/DAY
     Route: 058
     Dates: start: 20110701, end: 20120814
  8. ASCORBIC ACID. [Concomitant]
     Active Substance: ASCORBIC ACID
     Dosage: 100 MG, UNK
     Route: 048
  9. OMEPRAZOL [Concomitant]
     Active Substance: OMEPRAZOLE
     Indication: PROPHYLAXIS
     Dosage: 40 MG, 1X/DAY
     Route: 048
  10. GLICLAZIDE [Concomitant]
     Active Substance: GLICLAZIDE
     Indication: TYPE 2 DIABETES MELLITUS
     Dosage: 80 MG, 3X/DAY
     Route: 048
     Dates: start: 2008
  11. LANREOTIDE [Concomitant]
     Active Substance: LANREOTIDE
     Indication: ACROMEGALY
     Dosage: ONCE EVERY 4 WEEKS
     Route: 058
  12. CALCIUM CARBONATE/COLECALCIFEROL [Concomitant]
     Indication: OSTEOPOROSIS PROPHYLAXIS
     Dosage: 1 DF, 1X/DAY
     Route: 048

REACTIONS (4)
  - Weight increased [Not Recovered/Not Resolved]
  - Fall [Not Recovered/Not Resolved]
  - Gait disturbance [Not Recovered/Not Resolved]
  - Muscular weakness [Not Recovered/Not Resolved]

NARRATIVE: CASE EVENT DATE: 201107
